FAERS Safety Report 17144902 (Version 1)
Quarter: 2019Q4

REPORT INFORMATION
  Report Type: Spontaneous
  Country: US (occurrence: US)
  Receive Date: 20191119
  Receipt Date: 20191119
  Transmission Date: 20200122
  Serious: Yes (Life-Threatening)
  Sender: FDA-Public Use
  Company Number: None

PATIENT
  Age: 69 Year
  Sex: Male

DRUGS (1)
  1. WARFARIN [Suspect]
     Active Substance: WARFARIN
     Indication: ATRIAL FIBRILLATION
     Route: 048

REACTIONS (7)
  - Haematochezia [None]
  - Dizziness postural [None]
  - Fatigue [None]
  - Hypotension [None]
  - Diarrhoea [None]
  - Anticoagulation drug level above therapeutic [None]
  - Haemorrhage [None]

NARRATIVE: CASE EVENT DATE: 20190723
